FAERS Safety Report 4830572-4 (Version None)
Quarter: 2005Q4

REPORT INFORMATION
  Report Type: 
  Country: None (occurrence: None)
  Receive Date: 20051115
  Receipt Date: 20051102
  Transmission Date: 20060501
  Serious: Yes (Death)
  Sender: FDA-Public Use
  Company Number: 2004240185IT

PATIENT
  Age: 3 Year
  Sex: Male

DRUGS (1)
  1. GENOTROPIN [Suspect]
     Indication: PRADER-WILLI SYNDROME
     Dosage: 0.15 MG/KG, WEEKLY:  0.15 MG/KG WEEKLY.)
     Dates: start: 20020701

REACTIONS (1)
  - DEATH [None]
